FAERS Safety Report 9167409 (Version 1)
Quarter: 2013Q1

REPORT INFORMATION
  Report Type: Spontaneous
  Country: US (occurrence: US)
  Receive Date: 20130318
  Receipt Date: 20130318
  Transmission Date: 20140127
  Serious: Yes (Other)
  Sender: FDA-Public Use
  Company Number: US-JNJFOC-20130304796

PATIENT
  Age: 48 Year
  Sex: Male
  Weight: 106.1 kg

DRUGS (5)
  1. XARELTO [Suspect]
     Indication: THROMBOSIS PROPHYLAXIS
     Route: 048
     Dates: start: 20130226, end: 201303
  2. XARELTO [Suspect]
     Indication: HIP ARTHROPLASTY
     Route: 048
     Dates: start: 20130226, end: 201303
  3. IRON [Concomitant]
     Route: 065
  4. NORCO [Concomitant]
     Route: 065
  5. VITAMIN C [Concomitant]
     Route: 065

REACTIONS (2)
  - Deep vein thrombosis [Unknown]
  - Inappropriate schedule of drug administration [Recovered/Resolved]
